FAERS Safety Report 7996867 (Version 3)
Quarter: 2012Q4

REPORT INFORMATION
  Report Type: 
  Country: CA (occurrence: CA)
  Receive Date: 20110617
  Receipt Date: 20121109
  Transmission Date: 20130627
  Serious: Yes (Death, Other)
  Sender: FDA-Public Use
  Company Number: PHMT2007CA01048

PATIENT
  Sex: Female

DRUGS (3)
  1. SANDOSTATIN LAR [Suspect]
     Indication: CARCINOID TUMOUR
     Dosage: 30 mg,every 3 weeks
     Route: 030
     Dates: start: 20021004
  2. SANDOSTATIN LAR [Suspect]
     Dosage: 60 mg, every 2 weeks
     Route: 030
     Dates: end: 20080716
  3. SANDOSTATIN LAR [Suspect]
     Dates: start: 20070320

REACTIONS (14)
  - Death [Fatal]
  - Tricuspid valve disease [Not Recovered/Not Resolved]
  - Cardiac murmur [Unknown]
  - Liver disorder [Unknown]
  - Dyspnoea [Unknown]
  - Tremor [Unknown]
  - Hyperhidrosis [Unknown]
  - Bone density decreased [Unknown]
  - Hypotension [Unknown]
  - Oedema [Unknown]
  - Gastroenteritis viral [Unknown]
  - Flushing [Unknown]
  - Diarrhoea [Unknown]
  - Hypoglycaemia [Unknown]
